FAERS Safety Report 9387842 (Version 2)
Quarter: 2013Q4

REPORT INFORMATION
  Report Type: Spontaneous
  Country: CA (occurrence: CA)
  Receive Date: 20130708
  Receipt Date: 20131014
  Transmission Date: 20140711
  Serious: Yes (Other)
  Sender: FDA-Public Use
  Company Number: CA-BAYER-2013-081230

PATIENT
  Age: 75 Year
  Sex: Male

DRUGS (10)
  1. ASPIRIN [Suspect]
     Indication: PRODUCT USED FOR UNKNOWN INDICATION
     Dosage: 80 MG, QD
     Route: 065
     Dates: start: 20090205
  2. PLAVIX [Suspect]
     Indication: PRODUCT USED FOR UNKNOWN INDICATION
     Dosage: 75 MG, QD (1 DF QD)
     Route: 065
     Dates: start: 20090806, end: 20091216
  3. ALPRAZOLAM [Concomitant]
     Dosage: UNK
     Dates: start: 2008
  4. AVALIDE [Concomitant]
     Dosage: UNK
     Dates: start: 20090905
  5. CRESTOR [Concomitant]
  6. LYRICA [Concomitant]
     Dosage: UNK
     Dates: start: 200903
  7. METOPROLOL [Concomitant]
     Dosage: UNK
     Dates: start: 20090808
  8. PANTOPRAZOLE [Concomitant]
     Dosage: UNK
     Dates: start: 20090810
  9. SALBUTAMOL [Concomitant]
     Dosage: UNK
     Dates: start: 2007
  10. SYNTHROID [Concomitant]
     Dosage: UNK
     Dates: start: 2007

REACTIONS (1)
  - Rectal adenocarcinoma [Recovering/Resolving]
